FAERS Safety Report 4279823-8 (Version None)
Quarter: 2004Q1

REPORT INFORMATION
  Report Type: 
  Country: None (occurrence: None)
  Receive Date: 20040126
  Receipt Date: 20040113
  Transmission Date: 20041129
  Serious: Yes (Other)
  Sender: FDA-Public Use
  Company Number: DE-JNJFOC-20031103039

PATIENT
  Age: 65 Year
  Sex: Female
  Weight: 60 kg

DRUGS (7)
  1. REMICADE [Suspect]
     Indication: RHEUMATOID ARTHRITIS
     Dosage: 200 MG, 1 IN 4 WEEK, INTRAVENOUS
     Route: 042
     Dates: start: 20020208
  2. METHOTREXATE [Concomitant]
  3. PREDNISONE [Concomitant]
  4. SANDOCAL (SANDOCAL) [Concomitant]
  5. VALORON (DROPS) VALORON N DROPS [Concomitant]
  6. PANTOZOL (PANTOPRAZOLE SODIUM) [Concomitant]
  7. RANTUDIL FORTE (ACEMETACIN) [Concomitant]

REACTIONS (2)
  - OSTEOMYELITIS CHRONIC [None]
  - PATHOLOGICAL FRACTURE [None]
